FAERS Safety Report 7725499-4 (Version None)
Quarter: 2011Q3

REPORT INFORMATION
  Report Type: 
  Country: None (occurrence: None)
  Receive Date: 20110902
  Receipt Date: 20110726
  Transmission Date: 20111222
  Serious: No
  Sender: FDA-Public Use
  Company Number: US-BRISTOL-MYERS SQUIBB COMPANY-15844715

PATIENT
  Age: 69 Year
  Sex: Female
  Weight: 66 kg

DRUGS (5)
  1. KOMBIGLYZE XR [Suspect]
     Dosage: 1 DF = 5MG/500MG TABS
  2. CELEBREX [Concomitant]
  3. VAGISIL [Concomitant]
     Dosage: VAGISIL TABS
  4. CRESTOR [Concomitant]
  5. HORMONES [Concomitant]
     Dosage: HORMONE PATCH

REACTIONS (3)
  - FLATULENCE [None]
  - WEIGHT DECREASED [None]
  - DRUG INEFFECTIVE [None]
